FAERS Safety Report 8703937 (Version 8)
Quarter: 2015Q4

REPORT INFORMATION
  Report Type: Report from Study
  Country: NL (occurrence: NL)
  Receive Date: 20120803
  Receipt Date: 20151028
  Transmission Date: 20160305
  Serious: Yes (Death, Hospitalization, Other)
  Sender: FDA-Public Use
  Company Number: NL-BRISTOL-MYERS SQUIBB COMPANY-16824401

PATIENT
  Age: 64 Year
  Sex: Male
  Weight: 92 kg

DRUGS (1)
  1. IPILIMUMAB [Suspect]
     Active Substance: IPILIMUMAB
     Indication: MALIGNANT MELANOMA
     Dosage: FIRST COURSE, LAST  DOSE: 24JUL-2012,2DOSE
     Route: 042
     Dates: start: 20120703, end: 20120724

REACTIONS (3)
  - Intestinal perforation [Fatal]
  - Abdominal sepsis [Fatal]
  - Colitis [Fatal]

NARRATIVE: CASE EVENT DATE: 20120806
